FAERS Safety Report 12166060 (Version 1)
Quarter: 2016Q1

REPORT INFORMATION
  Report Type: Other
  Country: FR (occurrence: FR)
  Receive Date: 20160309
  Receipt Date: 20160309
  Transmission Date: 20160526
  Serious: Yes (Hospitalization)
  Sender: FDA-Public Use
  Company Number: FR-VALIDUS PHARMACEUTICALS LLC-FR-2016VAL000377

PATIENT
  Age: 60 Year
  Sex: Male

DRUGS (20)
  1. TAHOR [Suspect]
     Active Substance: ATORVASTATIN CALCIUM
     Indication: PRODUCT USED FOR UNKNOWN INDICATION
     Dosage: 40 MG, DAILY
     Route: 048
     Dates: end: 20150309
  2. FUROSEMIDE. [Suspect]
     Active Substance: FUROSEMIDE
     Dosage: UNK
     Route: 048
     Dates: start: 20150315
  3. INEXIUM                            /01479302/ [Suspect]
     Active Substance: ESOMEPRAZOLE MAGNESIUM
     Indication: PRODUCT USED FOR UNKNOWN INDICATION
     Dosage: 40 MG, DAILY
     Route: 048
     Dates: end: 20150309
  4. ARANESP [Concomitant]
     Active Substance: DARBEPOETIN ALFA
     Indication: PRODUCT USED FOR UNKNOWN INDICATION
     Dosage: UNK
  5. BISOCE [Concomitant]
     Active Substance: BISOPROLOL
     Indication: PRODUCT USED FOR UNKNOWN INDICATION
     Dosage: UNK
  6. FUROSEMIDE. [Suspect]
     Active Substance: FUROSEMIDE
     Indication: PRODUCT USED FOR UNKNOWN INDICATION
     Dosage: 125 MG, DAILY
     Route: 048
     Dates: end: 20150309
  7. COLCHICINE. [Suspect]
     Active Substance: COLCHICINE
     Indication: PRODUCT USED FOR UNKNOWN INDICATION
     Dosage: 2 MG, DAILY
     Route: 048
     Dates: start: 20150304, end: 20150309
  8. NEORAL [Concomitant]
     Active Substance: CYCLOSPORINE
     Indication: PRODUCT USED FOR UNKNOWN INDICATION
     Dosage: UNK
  9. LERCAN [Suspect]
     Active Substance: LERCANIDIPINE
     Indication: PRODUCT USED FOR UNKNOWN INDICATION
     Dosage: 10 MG, DAILY
     Route: 048
     Dates: end: 20150309
  10. HYPERIUM [Suspect]
     Active Substance: RILMENIDINE PHOSPHATE
     Dosage: UNK
     Route: 048
     Dates: start: 20150312
  11. CELLCEPT [Concomitant]
     Active Substance: MYCOPHENOLATE MOFETIL\MYCOPHENOLATE MOFETIL HYDROCHLORIDE
     Indication: PRODUCT USED FOR UNKNOWN INDICATION
     Dosage: UNK
  12. APROVEL [Suspect]
     Active Substance: IRBESARTAN
     Indication: PRODUCT USED FOR UNKNOWN INDICATION
     Dosage: 150 MG, DAILY
     Route: 048
     Dates: end: 20150309
  13. KARDEGIC [Concomitant]
     Active Substance: ASPIRIN LYSINE
     Indication: PRODUCT USED FOR UNKNOWN INDICATION
     Dosage: UNK
  14. ALPRESS [Suspect]
     Active Substance: PRAZOSIN
     Indication: PRODUCT USED FOR UNKNOWN INDICATION
     Dosage: 2.5 MG, TWICE A DAY
     Route: 048
     Dates: end: 20150309
  15. ALPRESS [Suspect]
     Active Substance: PRAZOSIN
     Dosage: UNK, TABLET FILM COATED
     Route: 048
     Dates: start: 20150312
  16. HYPERIUM [Suspect]
     Active Substance: RILMENIDINE PHOSPHATE
     Indication: PRODUCT USED FOR UNKNOWN INDICATION
     Dosage: 1 MG, TWICE A DAY
     Route: 048
     Dates: end: 20150309
  17. CORTANCYL [Concomitant]
     Active Substance: PREDNISONE
     Indication: PRODUCT USED FOR UNKNOWN INDICATION
     Dosage: UNK
  18. DOLIPRANE [Concomitant]
     Active Substance: ACETAMINOPHEN
     Indication: PRODUCT USED FOR UNKNOWN INDICATION
     Dosage: UNK
  19. APROVEL [Suspect]
     Active Substance: IRBESARTAN
     Dosage: UNK
     Route: 048
     Dates: start: 20150312
  20. LERCAN [Suspect]
     Active Substance: LERCANIDIPINE
     Dosage: UNK
     Route: 048
     Dates: start: 20150313

REACTIONS (7)
  - Arthralgia [Recovering/Resolving]
  - General physical health deterioration [Recovered/Resolved]
  - Rhabdomyolysis [Recovered/Resolved]
  - Burning sensation [Recovered/Resolved]
  - Diarrhoea [Recovered/Resolved]
  - Thrombocytopenia [Recovered/Resolved]
  - Hyperkalaemia [Recovered/Resolved]

NARRATIVE: CASE EVENT DATE: 20150305
